FAERS Safety Report 20790887 (Version 4)
Quarter: 2022Q3

REPORT INFORMATION
  Report Type: Other
  Country: US (occurrence: US)
  Receive Date: 20220505
  Receipt Date: 20220905
  Transmission Date: 20221026
  Serious: Yes (Hospitalization)
  Sender: FDA-Public Use
  Company Number: US-DECIPHERA PHARMACEUTICALS LLC-2022US000364

PATIENT
  Sex: Female

DRUGS (1)
  1. QINLOCK [Suspect]
     Active Substance: RIPRETINIB
     Indication: Gastrointestinal stromal tumour
     Dosage: 100 MILLIGRAM, QD
     Route: 048
     Dates: start: 20200530, end: 202207

REACTIONS (13)
  - Pain [Not Recovered/Not Resolved]
  - Neoplasm progression [Unknown]
  - Abdominal pain upper [Unknown]
  - Memory impairment [Unknown]
  - Laboratory test abnormal [Unknown]
  - Dizziness [Unknown]
  - Balance disorder [Unknown]
  - Seasonal allergy [Unknown]
  - Anxiety [Unknown]
  - Asthenia [Unknown]
  - Depression [Unknown]
  - Underdose [Unknown]
  - Product dose omission issue [Unknown]

NARRATIVE: CASE EVENT DATE: 20200530
